FAERS Safety Report 5247571-3 (Version None)
Quarter: 2007Q1

REPORT INFORMATION
  Report Type: 
  Country: None (occurrence: None)
  Receive Date: 20070123
  Receipt Date: 20070123
  Transmission Date: 20070707
  Serious: Yes (Other)
  Sender: FDA-Public Use
  Company Number: None

PATIENT
  Age: 69 Year
  Sex: Female
  Weight: 77.1115 kg

DRUGS (1)
  1. EXCEDRIN (MIGRAINE) [Suspect]
     Indication: INSOMNIA
     Dosage: TWO NIGHT TIME
     Dates: start: 20061215, end: 20070108

REACTIONS (1)
  - URTICARIA GENERALISED [None]
